FAERS Safety Report 20203991 (Version 1)
Quarter: 2021Q4

REPORT INFORMATION
  Report Type: Spontaneous
  Country: US (occurrence: US)
  Receive Date: 20211219
  Receipt Date: 20211219
  Transmission Date: 20220303
  Serious: Yes (Other)
  Sender: FDA-Public Use
  Company Number: US-BRISTOL-MYERS SQUIBB COMPANY-BMS-2021-136206

PATIENT
  Age: 41 Year
  Sex: Male

DRUGS (2)
  1. ORENCIA [Suspect]
     Active Substance: ABATACEPT
     Indication: Arthralgia
     Dosage: 125 MILLIGRAM, QWK
     Route: 058
     Dates: start: 20211019
  2. ORENCIA [Suspect]
     Active Substance: ABATACEPT
     Indication: Systemic lupus erythematosus
     Dosage: 125 MILLIGRAM, QWK
     Route: 058
     Dates: start: 20211026

REACTIONS (3)
  - Hepatic cirrhosis [Unknown]
  - Visual impairment [Unknown]
  - Intentional product use issue [Unknown]
